FAERS Safety Report 13634563 (Version 2)
Quarter: 2017Q2

REPORT INFORMATION
  Report Type: Report from Study
  Country: CN (occurrence: CN)
  Receive Date: 20170609
  Receipt Date: 20170628
  Transmission Date: 20170830
  Serious: Yes (Death)
  Sender: FDA-Public Use
  Company Number: CN-ROCHE-1805663

PATIENT
  Sex: Female
  Weight: 50 kg

DRUGS (1)
  1. AVASTIN [Suspect]
     Active Substance: BEVACIZUMAB
     Indication: COLON CANCER
     Route: 041
     Dates: start: 20160310

REACTIONS (11)
  - Depressed mood [Unknown]
  - Decreased appetite [Unknown]
  - White blood cell count decreased [Unknown]
  - Intestinal obstruction [Fatal]
  - Ascites [Fatal]
  - Fatigue [Unknown]
  - Carbohydrate antigen 125 increased [Unknown]
  - Asthenia [Unknown]
  - Discomfort [Unknown]
  - Abdominal pain [Unknown]
  - Carbohydrate antigen 19-9 increased [Recovering/Resolving]
